FAERS Safety Report 20422330 (Version 1)
Quarter: 2022Q1

REPORT INFORMATION
  Report Type: Spontaneous
  Country: US (occurrence: None)
  Receive Date: 20220203
  Receipt Date: 20220203
  Transmission Date: 20220424
  Serious: Yes (Other)
  Sender: FDA-Public Use
  Company Number: None

PATIENT
  Age: 56 Year
  Sex: Male

DRUGS (1)
  1. CAPECITABINE [Suspect]
     Active Substance: CAPECITABINE
     Indication: Rectal cancer
     Dosage: FREQUENCY : TWICE A DAY;?
     Route: 048
     Dates: start: 202201

REACTIONS (16)
  - Nausea [None]
  - Fatigue [None]
  - Abdominal pain upper [None]
  - Frequent bowel movements [None]
  - Withdrawal syndrome [None]
  - Feeling hot [None]
  - Feeling hot [None]
  - Nasopharyngitis [None]
  - Flatulence [None]
  - Tension headache [None]
  - Dysuria [None]
  - Hernia [None]
  - Regurgitation [None]
  - Gastrooesophageal reflux disease [None]
  - Anxiety [None]
  - Therapy interrupted [None]

NARRATIVE: CASE EVENT DATE: 20220120
